FAERS Safety Report 16649731 (Version 1)
Quarter: 2019Q3

REPORT INFORMATION
  Report Type: Spontaneous
  Country: CN (occurrence: CN)
  Receive Date: 20190730
  Receipt Date: 20190730
  Transmission Date: 20191004
  Serious: Yes (Hospitalization)
  Sender: FDA-Public Use
  Company Number: CN-BAXTER-2019BAX014398

PATIENT
  Age: 42 Year
  Sex: Male
  Weight: 65 kg

DRUGS (15)
  1. 0.9% SODIUM CHLORIDE INJECTION [Suspect]
     Active Substance: SODIUM CHLORIDE
     Indication: MEDICATION DILUTION
     Dosage: EPIRUBICIN 40 MG + 0.9% NS 30 ML
     Route: 042
     Dates: start: 20190518, end: 20190518
  2. VINDESINE SULFATE [Suspect]
     Active Substance: VINDESINE SULFATE
     Indication: LYMPHOMA
     Dosage: VINDESINE 2 MG + 0.9% NS 40 ML
     Route: 042
     Dates: start: 20190518, end: 20190518
  3. VINDESINE SULFATE [Suspect]
     Active Substance: VINDESINE SULFATE
     Dosage: DOSE REINTRODUCED
     Route: 042
  4. 0.9% SODIUM CHLORIDE INJECTION [Suspect]
     Active Substance: SODIUM CHLORIDE
     Dosage: CYCLOPHOSPHAMIDE 400 MG + 0.9% NS 40 ML
     Route: 042
     Dates: start: 20190518, end: 20190518
  5. EPIRUBICIN HYDROCHLORIDE. [Suspect]
     Active Substance: EPIRUBICIN HYDROCHLORIDE
     Dosage: DOSE REINTRODUCED
     Route: 042
  6. 0.9% SODIUM CHLORIDE INJECTION [Suspect]
     Active Substance: SODIUM CHLORIDE
     Dosage: VINDESINE 2 MG + 0.9% NS 40 ML
     Route: 042
     Dates: start: 20190518, end: 20190518
  7. 0.9% SODIUM CHLORIDE INJECTION [Suspect]
     Active Substance: SODIUM CHLORIDE
     Dosage: DOSE REINTRODUCED
     Route: 042
  8. EPIRUBICIN HYDROCHLORIDE. [Suspect]
     Active Substance: EPIRUBICIN HYDROCHLORIDE
     Indication: LYMPHOMA
     Dosage: EPIRUBICIN 40 MG + 0.9% NS 30 ML
     Route: 042
     Dates: start: 20190518, end: 20190518
  9. 0.9% SODIUM CHLORIDE INJECTION [Suspect]
     Active Substance: SODIUM CHLORIDE
     Dosage: RITUXIMAB 500 MG + 0.9% NS 500 ML
     Route: 041
     Dates: start: 20190518, end: 20190518
  10. FILGRASTIM [Concomitant]
     Active Substance: FILGRASTIM
     Indication: PRODUCT USED FOR UNKNOWN INDICATION
     Route: 058
     Dates: start: 20190519, end: 20190523
  11. MABTHERA [Suspect]
     Active Substance: RITUXIMAB
     Indication: LYMPHOMA
     Dosage: RITUXIMAB 500 MG + 0.9% NS 500 ML
     Route: 041
     Dates: start: 20190518, end: 20190518
  12. MABTHERA [Suspect]
     Active Substance: RITUXIMAB
     Dosage: DOSE REINTRODUCED
     Route: 041
  13. ENDOXAN [Suspect]
     Active Substance: CYCLOPHOSPHAMIDE
     Dosage: DOSE REINTRODUCED
     Route: 042
  14. ENDOXAN [Suspect]
     Active Substance: CYCLOPHOSPHAMIDE
     Indication: LYMPHOMA
     Dosage: CYCLOPHOSPHAMIDE 400 MG + 0.9% NS 40 ML
     Route: 042
     Dates: start: 20190518, end: 20190518
  15. 0.9% SODIUM CHLORIDE INJECTION [Suspect]
     Active Substance: SODIUM CHLORIDE
     Dosage: DOSE REINTRODUCED
     Route: 041

REACTIONS (1)
  - Bone marrow failure [Recovered/Resolved]

NARRATIVE: CASE EVENT DATE: 20190524
